FAERS Safety Report 9259089 (Version 1)
Quarter: 2013Q2

REPORT INFORMATION
  Report Type: Spontaneous
  Country: CH (occurrence: CH)
  Receive Date: 20130426
  Receipt Date: 20130426
  Transmission Date: 20140414
  Serious: Yes (Life-Threatening)
  Sender: FDA-Public Use
  Company Number: PHHY2013CH040832

PATIENT
  Sex: 0

DRUGS (8)
  1. SANDIMMUN NEORAL [Suspect]
     Indication: PSORIASIS
     Route: 048
     Dates: start: 201104, end: 201108
  2. METHOTREXATE [Suspect]
     Dosage: 15MG, QW
     Dates: start: 201004, end: 201008
  3. HUMIRA [Interacting]
     Indication: PSORIASIS
     Dosage: 40 MG, BIW
     Route: 058
     Dates: start: 201008
  4. ENBREL [Interacting]
     Indication: PSORIASIS
     Dosage: 50MG,QW
     Route: 058
     Dates: start: 201106, end: 201109
  5. SEROQUEL [Concomitant]
     Indication: DEPRESSION
     Route: 048
  6. DEROXAT [Concomitant]
     Indication: DEPRESSION
     Route: 048
  7. TEMESTA [Concomitant]
     Route: 048
  8. CIMIFEMIN [Concomitant]
     Route: 048

REACTIONS (2)
  - Lung neoplasm malignant [Not Recovered/Not Resolved]
  - Pulmonary hilum mass [Not Recovered/Not Resolved]
